FAERS Safety Report 6502893-0 (Version None)
Quarter: 2009Q4

REPORT INFORMATION
  Report Type: 
  Country: None (occurrence: None)
  Receive Date: 20091127
  Receipt Date: 20090624
  Transmission Date: 20100525
  Serious: Yes (Other)
  Sender: FDA-Public Use
  Company Number: WAES 0906USA05030

PATIENT
  Age: 51 Year
  Sex: Female

DRUGS (5)
  1. FOSAMAX [Suspect]
     Indication: OSTEOPENIA
     Dosage: 70 MG/WKY/PO
     Route: 048
     Dates: start: 20070101, end: 20080101
  2. ASPIRIN [Concomitant]
  3. INDERAL [Concomitant]
  4. LOVAZA [Concomitant]
  5. SIMVASTIN [Concomitant]

REACTIONS (1)
  - OSTEONECROSIS [None]
